FAERS Safety Report 6204249-7 (Version None)
Quarter: 2009Q2

REPORT INFORMATION
  Report Type: 
  Country: None (occurrence: None)
  Receive Date: 20090527
  Receipt Date: 20090515
  Transmission Date: 20091009
  Serious: Yes (Death, Hospitalization)
  Sender: FDA-Public Use
  Company Number: GB-GILEAD-E2B_00000346

PATIENT
  Sex: Female

DRUGS (7)
  1. AMBRISENTAN [Suspect]
     Indication: PULMONARY ARTERIAL HYPERTENSION
     Dosage: 5MG PER DAY
     Route: 048
     Dates: start: 20080715, end: 20090511
  2. FUROSEMIDE [Concomitant]
     Indication: PULMONARY ARTERIAL HYPERTENSION
     Dosage: 40MG PER DAY
     Route: 048
     Dates: start: 20081215, end: 20090511
  3. SIMVASTATIN [Concomitant]
     Indication: PROPHYLAXIS
     Dosage: 40MG PER DAY
     Route: 048
     Dates: start: 20080623, end: 20090511
  4. LANSOPRAZOLE [Concomitant]
     Indication: PROPHYLAXIS
     Dosage: 30MG PER DAY
     Route: 048
     Dates: start: 20081215, end: 20090511
  5. CHLORAMPHENICOL [Concomitant]
     Indication: EYE INFLAMMATION
     Dosage: 1DROP THREE TIMES PER DAY
     Route: 047
     Dates: start: 20081217, end: 20090511
  6. FERROUS SULFATE TAB [Concomitant]
     Indication: IRON DEFICIENCY ANAEMIA
     Route: 048
     Dates: start: 20090119, end: 20090511
  7. SILDENAFIL CITRATE [Concomitant]
     Indication: PULMONARY ARTERIAL HYPERTENSION
     Route: 048
     Dates: start: 20090310, end: 20090511

REACTIONS (2)
  - ANAEMIA [None]
  - CARDIAC ARREST [None]
